FAERS Safety Report 19650198 (Version 3)
Quarter: 2022Q1

REPORT INFORMATION
  Report Type: Spontaneous
  Country: GB (occurrence: GB)
  Receive Date: 20210803
  Receipt Date: 20220210
  Transmission Date: 20220423
  Serious: Yes (Hospitalization, Other)
  Sender: FDA-Public Use
  Company Number: GB-ROCHE-1757222

PATIENT
  Age: 57 Year
  Sex: Female

DRUGS (117)
  1. ANASTROZOLE [Suspect]
     Active Substance: ANASTROZOLE
     Indication: Breast cancer metastatic
     Dosage: 1 MILLIGRAM, ONCE A DAY(ARIMIDEX)
     Route: 048
     Dates: start: 20151021, end: 20171027
  2. ANASTROZOLE [Suspect]
     Active Substance: ANASTROZOLE
     Indication: Breast cancer
  3. EXEMESTANE [Suspect]
     Active Substance: EXEMESTANE
     Indication: Breast cancer metastatic
     Dosage: 25 MG, UNK
     Route: 048
     Dates: start: 20090921
  4. EXEMESTANE [Suspect]
     Active Substance: EXEMESTANE
     Indication: Breast cancer
     Dosage: 25 MG, QD (1/DAY)
     Route: 048
     Dates: start: 20150328
  5. EXEMESTANE [Suspect]
     Active Substance: EXEMESTANE
     Dosage: 25 MILLIGRAM, DAILY
     Route: 048
     Dates: start: 20151021
  6. EXEMESTANE [Suspect]
     Active Substance: EXEMESTANE
     Dosage: 1 DOSAGE FORM, DAILY
     Route: 048
     Dates: start: 201607
  7. EXEMESTANE [Suspect]
     Active Substance: EXEMESTANE
     Dosage: 1 DOSAGE FORM, DAILY
     Route: 048
     Dates: start: 201607, end: 20160921
  8. CAPECITABINE [Suspect]
     Active Substance: CAPECITABINE
     Indication: Breast cancer metastatic
     Dosage: 3300 MILLIGRAM, ONCE A DAY
     Route: 048
  9. CAPECITABINE [Suspect]
     Active Substance: CAPECITABINE
     Indication: Breast cancer
     Dosage: 1650 MILLIGRAM (0.5 DAY)
     Route: 048
  10. CAPECITABINE [Suspect]
     Active Substance: CAPECITABINE
     Dosage: 3300 MG, UNK
     Route: 048
     Dates: start: 20160901, end: 20160914
  11. DOCETAXEL [Suspect]
     Active Substance: DOCETAXEL
     Indication: Breast cancer metastatic
     Dosage: 130 MILLIGRAM 3 WEEK(PLANNED NUMBER OF CYCLES COMPLETED)
     Route: 042
     Dates: start: 20150507
  12. DOCETAXEL [Suspect]
     Active Substance: DOCETAXEL
     Indication: Breast cancer
     Dosage: 25 MG, 1/DAY
     Route: 048
     Dates: start: 20150328
  13. DOCETAXEL [Suspect]
     Active Substance: DOCETAXEL
     Dosage: 130 MILLIGRAM, 1 DOSE/3 WEEKS
     Route: 042
     Dates: start: 20150507
  14. DOCETAXEL [Suspect]
     Active Substance: DOCETAXEL
     Dosage: 100 MG,1/DAY
     Route: 048
     Dates: start: 20161028
  15. DOCETAXEL [Suspect]
     Active Substance: DOCETAXEL
     Dosage: 100 MG, 1/DAY
     Route: 048
     Dates: start: 20161111
  16. DOCETAXEL [Suspect]
     Active Substance: DOCETAXEL
     Dosage: 25 MG, 1/DAY
     Route: 048
     Dates: start: 20151021
  17. DOCETAXEL [Suspect]
     Active Substance: DOCETAXEL
     Dosage: 25 MG, 1/DAY
     Route: 048
     Dates: start: 20090921
  18. DOCETAXEL [Suspect]
     Active Substance: DOCETAXEL
     Dosage: UNK
  19. PERTUZUMAB [Suspect]
     Active Substance: PERTUZUMAB
     Indication: Breast cancer metastatic
     Dosage: 462 MILLIGRAM (UNK, LOADING DOSE 3/WEEK (CV)
     Route: 065
     Dates: start: 20150606
  20. PERTUZUMAB [Suspect]
     Active Substance: PERTUZUMAB
     Indication: Breast cancer
     Dosage: 840 MILLIGRAM, CYCLICAL(LOADING DOSE)
     Route: 042
     Dates: start: 20150507
  21. PERTUZUMAB [Suspect]
     Active Substance: PERTUZUMAB
     Dosage: 420 MILLIGRAM (3 TIMES IN A WEEK)
     Route: 042
     Dates: start: 20150527
  22. PERTUZUMAB [Suspect]
     Active Substance: PERTUZUMAB
     Dosage: 2520 MILLIGRAM, WEEKLY, LOADING DOSE
     Route: 042
     Dates: start: 20150507
  23. PERTUZUMAB [Suspect]
     Active Substance: PERTUZUMAB
     Dosage: 357 MILLIGRAM, WEEKLY
     Route: 042
     Dates: start: 20150527
  24. TRASTUZUMAB [Suspect]
     Active Substance: TRASTUZUMAB
     Indication: Breast cancer metastatic
     Dosage: 462 MILLIGRAM(LOADING DOSE 1 CYCLE)
     Route: 042
     Dates: start: 20150506
  25. TRASTUZUMAB [Suspect]
     Active Substance: TRASTUZUMAB
     Indication: Breast cancer
     Dosage: 357 MILLIGRAM, 3 TIMES IN A WEEKS
     Route: 042
     Dates: start: 20150527
  26. TRASTUZUMAB [Suspect]
     Active Substance: TRASTUZUMAB
     Dosage: 462 MILLIGRAM, UNK, LOADING DOSE 3/WEEK (CV)
     Route: 042
     Dates: start: 20150506, end: 20150506
  27. TRASTUZUMAB [Suspect]
     Active Substance: TRASTUZUMAB
     Dosage: 357 MILLIGRAM, WEEKLY
     Route: 042
     Dates: start: 20160527, end: 20160630
  28. ADO-TRASTUZUMAB EMTANSINE [Suspect]
     Active Substance: ADO-TRASTUZUMAB EMTANSINE
     Indication: Breast cancer metastatic
     Dosage: 224 MILLIGRAM, (3 WEEK)
     Route: 042
  29. ADO-TRASTUZUMAB EMTANSINE [Suspect]
     Active Substance: ADO-TRASTUZUMAB EMTANSINE
     Indication: Breast cancer
     Dosage: 462 MILLIGRAM, WEEKLY
     Route: 042
     Dates: start: 20150506, end: 20150506
  30. ADO-TRASTUZUMAB EMTANSINE [Suspect]
     Active Substance: ADO-TRASTUZUMAB EMTANSINE
     Dosage: 357 MILLIGRAM, WEEKLY
     Route: 065
     Dates: start: 20150527, end: 20160630
  31. ADO-TRASTUZUMAB EMTANSINE [Suspect]
     Active Substance: ADO-TRASTUZUMAB EMTANSINE
     Dosage: 224 MILLIGRAM, UNK EVERY 3 WEEKS
     Route: 042
     Dates: start: 20170620
  32. HERCEPTIN [Suspect]
     Active Substance: TRASTUZUMAB
     Indication: Breast cancer
     Dosage: LOADING DOSE 3/WEEK (CV)
     Route: 042
     Dates: start: 20150506
  33. HERCEPTIN [Suspect]
     Active Substance: TRASTUZUMAB
     Dosage: 357 MG, EVERY 3 WEEKS
     Route: 042
     Dates: start: 20150527
  34. VINORELBINE [Suspect]
     Active Substance: VINORELBINE TARTRATE
     Indication: Breast cancer metastatic
     Dosage: 100 MILLIGRAM, ONCE A DAY
     Route: 048
     Dates: start: 20160901
  35. VINORELBINE [Suspect]
     Active Substance: VINORELBINE TARTRATE
     Dosage: 100 MILLIGRAM, ONCE A DAY
     Route: 048
     Dates: start: 20161111
  36. VINORELBINE [Suspect]
     Active Substance: VINORELBINE TARTRATE
     Indication: Breast cancer
     Dosage: 100 MILLIGRAM, UNK, 100 UNK, UNK
     Route: 048
     Dates: start: 20160901, end: 20160930
  37. VINORELBINE [Suspect]
     Active Substance: VINORELBINE TARTRATE
     Dosage: 100 MILLIGRAM, UNK, 100 MG, UNK
     Route: 048
     Dates: start: 20161028, end: 20161028
  38. VINORELBINE [Suspect]
     Active Substance: VINORELBINE TARTRATE
     Dosage: 100 MILLIGRAM, DAILY, 100 MG, QD (1/DAY)
     Route: 048
     Dates: start: 20161111
  39. TAXOTERE [Suspect]
     Active Substance: DOCETAXEL
     Indication: Breast cancer
     Dosage: 130 MILLIGRAM, UNK, EVERY 3 WEEKS
     Route: 042
     Dates: start: 20150507
  40. XELODA [Suspect]
     Active Substance: CAPECITABINE
     Indication: Breast cancer
     Dosage: 3300 MG, UNK
     Route: 048
     Dates: start: 20160901, end: 20160914
  41. CALCIUM CARBONATE\CHOLECALCIFEROL [Concomitant]
     Active Substance: CALCIUM CARBONATE\CHOLECALCIFEROL
     Indication: Product used for unknown indication
     Dosage: UNK
     Route: 048
  42. AMITRIPTYLINE [Concomitant]
     Active Substance: AMITRIPTYLINE
     Indication: Product used for unknown indication
     Dosage: 10 MILLIGRAM, DAILY
     Route: 048
     Dates: start: 201603
  43. APREPITANT [Concomitant]
     Active Substance: APREPITANT
     Indication: Prophylaxis
     Dosage: UNK
     Route: 065
     Dates: start: 20150527, end: 20150905
  44. BISOPROLOL [Concomitant]
     Active Substance: BISOPROLOL
     Indication: Palpitations
     Dosage: 1.25 MILLIGRAM
     Route: 048
     Dates: start: 20160602
  45. BISOPROLOL [Concomitant]
     Active Substance: BISOPROLOL
     Dosage: UNK
     Route: 048
     Dates: start: 20160602, end: 20171027
  46. CALAMINE [Concomitant]
     Active Substance: CALAMINE\FERRIC OXIDE RED\ZINC OXIDE
     Indication: Rash
     Dosage: UNK UNK, PRN 1 APPLICATION, AS NEEDED ()
     Route: 061
     Dates: start: 20150915, end: 20151021
  47. CODEINE PHOSPHATE [Concomitant]
     Active Substance: CODEINE PHOSPHATE
     Indication: Diarrhoea
     Dosage: 60 MILLIGRAM, QD (QDS AS NEEDED)
     Route: 048
     Dates: start: 20150603, end: 20150715
  48. CHLORHEXIDINE GLUCONATE [Concomitant]
     Active Substance: CHLORHEXIDINE GLUCONATE
     Indication: Mucosal inflammation
     Dosage: UNK, PRN 1 MOUTH WASH AS NEEDED ()
     Route: 048
     Dates: start: 20150514, end: 20150715
  49. CYCLIZINE [Concomitant]
     Active Substance: CYCLIZINE
     Indication: Prophylaxis
     Dosage: 150 MILLIGRAM, ONCE A DAY(PROPHYLACTIC CHEMO RELATED NAUSEA)
     Route: 048
  50. CYCLIZINE [Concomitant]
     Active Substance: CYCLIZINE
     Dosage: 150 MILLIGRAM, DAILY, 150 MG, QD (1/DAY)
     Route: 048
     Dates: start: 20150603, end: 20150715
  51. DEXAMETHASONE [Concomitant]
     Active Substance: DEXAMETHASONE
     Indication: Premedication
     Dosage: 2 MILLIGRAM
     Route: 048
  52. DEXAMETHASONE [Concomitant]
     Active Substance: DEXAMETHASONE
     Dosage: 8 MILLIGRAM
     Route: 048
     Dates: start: 20150504, end: 20150904
  53. DEXAMETHASONE [Concomitant]
     Active Substance: DEXAMETHASONE
     Dosage: 1 DOSAGE FORM, DAILY
     Route: 048
     Dates: start: 20150506, end: 20150717
  54. DEXAMETHASONE [Concomitant]
     Active Substance: DEXAMETHASONE
     Dosage: 1 DOSAGE FORM, DAILY, 1 DF, QD (1/DAY)
     Route: 048
     Dates: start: 201607, end: 20160921
  55. DEXAMETHASONE [Concomitant]
     Active Substance: DEXAMETHASONE
     Dosage: 2 MG, UNKNOWN
     Route: 048
     Dates: start: 20160713, end: 20161004
  56. DEXAMETHASONE [Concomitant]
     Active Substance: DEXAMETHASONE
     Dosage: 2 MILLIGRAM, 1 DF, QD (1/DAY)
     Route: 048
     Dates: start: 20161004, end: 20161123
  57. DEXAMETHASONE [Concomitant]
     Active Substance: DEXAMETHASONE
     Dosage: 1 DOSAGE FORM, DAILY, 1 DF, QD (1/DAY)
     Route: 048
     Dates: start: 20161123, end: 20161130
  58. DEXAMETHASONE [Concomitant]
     Active Substance: DEXAMETHASONE
     Dosage: 1 DOSAGE FORM, DAILY, 1 DF, QD (1/DAY)
     Route: 048
     Dates: start: 20161130, end: 20161201
  59. DEXAMETHASONE [Concomitant]
     Active Substance: DEXAMETHASONE
     Dosage: 1 DOSAGE FORM, DAILY, 1 DF, QD (1/DAY)
     Route: 048
     Dates: start: 201612, end: 20170510
  60. DEXAMETHASONE [Concomitant]
     Active Substance: DEXAMETHASONE
     Dosage: 1 DOSAGE FORM, DAILY, 1 DF, QD (1/DAY)
     Route: 048
     Dates: start: 201612, end: 201612
  61. DEXAMETHASONE [Concomitant]
     Active Substance: DEXAMETHASONE
     Dosage: 1 DOSAGE FORM, DAILY, 1 DF, QD (1/DAY)
     Route: 048
     Dates: start: 20170216, end: 20170830
  62. FLUCLOXACILLIN [Concomitant]
     Active Substance: FLUCLOXACILLIN
     Indication: Nail infection
     Dosage: 750 MILLIGRAM, 3 TIMES A DAY
     Route: 048
     Dates: start: 20150603, end: 20150610
  63. HYDROCORTISONE [Concomitant]
     Active Substance: HYDROCORTISONE
     Indication: Rash
     Dosage: UNK,LOTION APPLICATION
     Route: 061
     Dates: start: 20150725, end: 20150802
  64. LANSOPRAZOLE [Concomitant]
     Active Substance: LANSOPRAZOLE
     Indication: Prophylaxis
     Dosage: UNK,PROPHYLACTIC TO PROTECT STOMACH WHILST ON STEROIDS
     Route: 048
     Dates: start: 20150504
  65. LEVETIRACETAM [Concomitant]
     Active Substance: LEVETIRACETAM
     Indication: Epilepsy
     Dosage: 250 MILLIGRAM
     Route: 048
     Dates: start: 20160727
  66. LOPERAMIDE [Concomitant]
     Active Substance: LOPERAMIDE
     Indication: Diarrhoea
     Dosage: 4 MILLIGRAM
     Route: 048
     Dates: start: 20150514, end: 20150904
  67. LOSARTAN [Concomitant]
     Active Substance: LOSARTAN
     Indication: Product used for unknown indication
     Dosage: 50 MILLIGRAM
     Route: 048
     Dates: start: 20160602
  68. CHLORPHENIRAMINE MALEATE [Concomitant]
     Active Substance: CHLORPHENIRAMINE MALEATE
     Indication: Rash
     Dosage: 5 MILLIGRAM, PRN
     Route: 048
     Dates: start: 20150725, end: 20151021
  69. QUININE SULFATE [Concomitant]
     Active Substance: QUININE SULFATE
     Indication: Muscle spasms
     Dosage: 200 MILLIGRAM
     Route: 048
     Dates: start: 20161123
  70. RAMIPRIL [Concomitant]
     Active Substance: RAMIPRIL
     Indication: Palpitations
     Dosage: 5 MILLIGRAM
     Route: 048
  71. RAMIPRIL [Concomitant]
     Active Substance: RAMIPRIL
     Indication: Cough
     Dosage: 5 MILLIGRAM, DAILY, 5 MG, QD (1/DAY)
     Route: 048
     Dates: start: 20160308, end: 20160602
  72. RAMIPRIL [Concomitant]
     Active Substance: RAMIPRIL
     Dosage: 5 MILLIGRAM, DAILY
     Route: 065
     Dates: start: 20160308
  73. CODEINE [Concomitant]
     Active Substance: CODEINE
     Indication: Palpitations
     Dosage: UNK
     Route: 048
     Dates: start: 2015
  74. CODEINE [Concomitant]
     Active Substance: CODEINE
     Indication: Headache
     Dosage: SUBSEQUENT DOSE RECEIVED ON 18/NOV/2016
     Route: 048
     Dates: start: 20150506, end: 2016
  75. CODEINE [Concomitant]
     Active Substance: CODEINE
     Indication: Cough
     Dosage: UNK
     Route: 048
     Dates: start: 20150508, end: 20150904
  76. CODEINE [Concomitant]
     Active Substance: CODEINE
     Indication: Constipation
     Dosage: 1 DF, QD (1/DAY)
     Route: 048
     Dates: start: 201607, end: 20160921
  77. CODEINE [Concomitant]
     Active Substance: CODEINE
     Indication: Premedication
     Dosage: 250 MILLIGRAM
     Route: 048
     Dates: start: 20160727, end: 20171027
  78. CODEINE [Concomitant]
     Active Substance: CODEINE
     Indication: Diarrhoea
     Dosage: 1 DF, QD (1/DAY)
     Route: 048
     Dates: start: 20161004, end: 20161123
  79. CODEINE [Concomitant]
     Active Substance: CODEINE
     Indication: Muscle spasms
     Dosage: UNK
     Route: 048
     Dates: start: 20161111, end: 2016
  80. CODEINE [Concomitant]
     Active Substance: CODEINE
     Indication: Urinary tract infection
     Dosage: 200 MG, UNK
     Route: 048
     Dates: start: 20161123, end: 20171027
  81. CODEINE [Concomitant]
     Active Substance: CODEINE
     Indication: Epilepsy
     Dosage: 1 DOSAGE FORM, ONCE A DAY
     Route: 048
     Dates: start: 20161123, end: 20161130
  82. CODEINE [Concomitant]
     Active Substance: CODEINE
     Dosage: UNK
     Route: 048
     Dates: start: 20161130, end: 20161201
  83. CODEINE [Concomitant]
     Active Substance: CODEINE
     Dosage: 2 MG, UNK
     Route: 048
     Dates: start: 201612, end: 20170510
  84. CODEINE [Concomitant]
     Active Substance: CODEINE
     Dosage: UNK, UNKNOWN
     Route: 048
     Dates: start: 20170209, end: 20170216
  85. CODEINE [Concomitant]
     Active Substance: CODEINE
     Dosage: UNK
     Route: 048
     Dates: start: 20170216, end: 20170830
  86. CODEINE [Concomitant]
     Active Substance: CODEINE
     Dosage: UNK
     Route: 048
     Dates: start: 20150603, end: 20150715
  87. CODEINE [Concomitant]
     Active Substance: CODEINE
     Dosage: 1 TABLET
     Route: 048
     Dates: start: 20170201
  88. CODEINE [Concomitant]
     Active Substance: CODEINE
     Dosage: UNK, UNKNOWN
     Route: 048
     Dates: start: 20170815, end: 2017
  89. CODEINE [Concomitant]
     Active Substance: CODEINE
     Dosage: UNK
     Route: 048
     Dates: start: 201612, end: 201612
  90. CODEINE [Concomitant]
     Active Substance: CODEINE
     Dosage: UNK, UNKNOWN
     Route: 048
     Dates: start: 20160602, end: 20171027
  91. CODEINE [Concomitant]
     Active Substance: CODEINE
     Dosage: UNK
     Route: 048
     Dates: start: 20160811, end: 20161027
  92. AMOXICILLIN [Concomitant]
     Active Substance: AMOXICILLIN
     Indication: Oropharyngeal pain
     Dosage: 3 DOSAGE FORM, DAILY, 3 DF,  TID (3/DAY)
     Route: 048
     Dates: start: 20151104
  93. BECLOMETHASONE DIPROPIONATE [Concomitant]
     Active Substance: BECLOMETHASONE DIPROPIONATE
     Indication: Wheezing
     Dosage: UNK,
     Route: 065
  94. CASSIA ACUTIFOLIA [Concomitant]
     Indication: Constipation
     Dosage: UNK
     Route: 048
     Dates: start: 20161221
  95. CALCIUM GLUCONATE [Concomitant]
     Active Substance: CALCIUM GLUCONATE
     Indication: Product used for unknown indication
     Dosage: UNK
     Route: 065
  96. COCODAMOL [Concomitant]
     Active Substance: ACETAMINOPHEN\CODEINE PHOSPHATE
     Indication: Headache
     Dosage: UNK
     Route: 048
     Dates: start: 20160929
  97. FLUCONAZOLE [Concomitant]
     Active Substance: FLUCONAZOLE
     Indication: Product used for unknown indication
     Dosage: UNK
     Route: 048
     Dates: start: 20171004
  98. Gelclair [Concomitant]
     Indication: Product used for unknown indication
     Dosage: UNK
     Route: 065
     Dates: start: 20150514
  99. IBUPROFEN [Concomitant]
     Active Substance: IBUPROFEN
     Indication: Product used for unknown indication
     Dosage: 1 DOSAGE FORM, DAILY, 1 TABLET
     Route: 048
     Dates: start: 20170201
  100. KEPPRA [Concomitant]
     Active Substance: LEVETIRACETAM
     Indication: Muscle twitching
     Dosage: UNK, TWO TIMES A DAY
     Route: 048
     Dates: start: 20160727, end: 20160810
  101. KEPPRA [Concomitant]
     Active Substance: LEVETIRACETAM
     Dosage: UNK, TWO TIMES A DAY
     Route: 048
     Dates: start: 20160811, end: 20161027
  102. LACTULOSE [Concomitant]
     Active Substance: LACTULOSE
     Indication: Product used for unknown indication
     Dosage: UNK
     Route: 048
     Dates: start: 20170201, end: 201703
  103. LACTULOSE [Concomitant]
     Active Substance: LACTULOSE
     Dosage: UNK
     Route: 048
     Dates: start: 201603, end: 20171021
  104. LACTULOSE [Concomitant]
     Active Substance: LACTULOSE
     Dosage: UNK
     Route: 048
     Dates: start: 20161221, end: 20171021
  105. METOCLOPRAMIDE [Concomitant]
     Active Substance: METOCLOPRAMIDE
     Indication: Product used for unknown indication
     Dosage: BID
     Route: 042
     Dates: start: 20150506, end: 20150903
  106. METOCLOPRAMIDE [Concomitant]
     Active Substance: METOCLOPRAMIDE
     Dosage: SUBSEQUENT DOSE RECEIVED ON 18/NOV/2016 ()
     Route: 048
     Dates: start: 20150506, end: 2016
  107. METOCLOPRAMIDE [Concomitant]
     Active Substance: METOCLOPRAMIDE
     Dosage: 2 DOSAGE FORM, ONCE A DAY
     Route: 048
     Dates: start: 20170301
  108. NITROFURANTOIN [Concomitant]
     Active Substance: NITROFURANTOIN
     Indication: Product used for unknown indication
     Dosage: UNK
     Route: 065
     Dates: start: 20170621
  109. ONDANSETRON [Concomitant]
     Active Substance: ONDANSETRON
     Indication: Product used for unknown indication
     Dosage: UNK
     Route: 048
     Dates: start: 20150508, end: 20150904
  110. ONDANSETRON [Concomitant]
     Active Substance: ONDANSETRON
     Dosage: UNK
     Route: 048
     Dates: start: 20161111
  111. ACETAMINOPHEN [Concomitant]
     Active Substance: ACETAMINOPHEN
     Indication: Headache
     Dosage: UNK
     Route: 058
     Dates: start: 20150506, end: 20150903
  112. ACETAMINOPHEN [Concomitant]
     Active Substance: ACETAMINOPHEN
     Dosage: UNK
     Route: 048
     Dates: start: 20160629, end: 20171027
  113. PEGFILGRASTIM [Concomitant]
     Active Substance: PEGFILGRASTIM
     Indication: Product used for unknown indication
     Dosage: UNK
     Route: 058
     Dates: start: 20150506
  114. SENNA [Concomitant]
     Active Substance: SENNA LEAF\SENNOSIDES\SENNOSIDES A AND B
     Indication: Constipation
     Dosage: UNK
     Route: 048
     Dates: start: 20161221
  115. SPIRONOLACTONE [Concomitant]
     Active Substance: SPIRONOLACTONE
     Indication: Palpitations
     Dosage: UNK
     Route: 048
     Dates: start: 20160602
  116. TRIMETHOPRIM [Concomitant]
     Active Substance: TRIMETHOPRIM
     Indication: Urinary tract infection
     Dosage: UNK
     Route: 048
     Dates: start: 20170209
  117. VENTOLIN [Concomitant]
     Active Substance: ALBUTEROL SULFATE
     Indication: Wheezing
     Dosage: UNK
     Route: 065
     Dates: start: 20170621

REACTIONS (30)
  - Abdominal pain [Unknown]
  - Alopecia [Unknown]
  - Cardiovascular insufficiency [Unknown]
  - Chest pain [Recovered/Resolved]
  - Cough [Recovered/Resolved]
  - Constipation [Recovered/Resolved]
  - Depressed mood [Not Recovered/Not Resolved]
  - Diarrhoea [Recovered/Resolved]
  - Dizziness [Unknown]
  - Fatigue [Not Recovered/Not Resolved]
  - Headache [Recovered/Resolved]
  - Hiccups [Recovered/Resolved]
  - Lacrimation increased [Not Recovered/Not Resolved]
  - Mucosal inflammation [Unknown]
  - Muscle spasms [Unknown]
  - Muscle twitching [Unknown]
  - Nail disorder [Recovered/Resolved]
  - Nail infection [Recovered/Resolved]
  - Nausea [Recovered/Resolved]
  - Neuralgia [Not Recovered/Not Resolved]
  - Neuropathy peripheral [Not Recovered/Not Resolved]
  - Nasopharyngitis [Recovered/Resolved]
  - Oropharyngeal pain [Recovered/Resolved]
  - Palpitations [Not Recovered/Not Resolved]
  - Rash [Recovered/Resolved]
  - Seizure [Unknown]
  - Systolic dysfunction [Not Recovered/Not Resolved]
  - Urinary tract infection [Recovered/Resolved]
  - Vaginal discharge [Recovered/Resolved]
  - Weight decreased [Unknown]

NARRATIVE: CASE EVENT DATE: 20150514
